FAERS Safety Report 9337532 (Version 1)
Quarter: 2013Q2

REPORT INFORMATION
  Report Type: Spontaneous
  Country: US (occurrence: US)
  Receive Date: 20130607
  Receipt Date: 20130607
  Transmission Date: 20140414
  Serious: Yes (Hospitalization)
  Sender: FDA-Public Use
  Company Number: US-BAYER-2013-068969

PATIENT
  Age: 51 Year
  Sex: Female

DRUGS (12)
  1. YAZ [Suspect]
  2. YASMIN [Suspect]
  3. LEVOTHYROXINE [Concomitant]
  4. ACIPHEX [Concomitant]
  5. KEFLEX [Concomitant]
  6. VICODIN [Concomitant]
  7. CIPRO [Concomitant]
  8. BACTROBAN [Concomitant]
  9. BENTYL [Concomitant]
  10. REGLAN [Concomitant]
  11. DICYCLOMINE [Concomitant]
  12. LEVOTHROID [Concomitant]

REACTIONS (3)
  - Portal vein thrombosis [None]
  - Mesenteric vein thrombosis [None]
  - Splenic vein thrombosis [None]
